FAERS Safety Report 24808139 (Version 2)
Quarter: 2025Q1

REPORT INFORMATION
  Report Type: Spontaneous
  Country: FR (occurrence: FR)
  Receive Date: 20250106
  Receipt Date: 20250310
  Transmission Date: 20250408
  Serious: Yes (Death)
  Sender: JOHNSON AND JOHNSON
  Company Number: FR-AFSSAPS-NC2024001686

PATIENT
  Age: 70 Year
  Sex: Male

DRUGS (1)
  1. TECVAYLI [Suspect]
     Active Substance: TECLISTAMAB-CQYV
     Indication: Plasma cell myeloma
     Dates: start: 20240708, end: 20241025

REACTIONS (2)
  - Septic shock [Fatal]
  - Lung disorder [Fatal]

NARRATIVE: CASE EVENT DATE: 20241105
